FAERS Safety Report 6291822-3 (Version None)
Quarter: 2009Q3

REPORT INFORMATION
  Report Type: 
  Country: None (occurrence: None)
  Receive Date: 20090729
  Receipt Date: 20090717
  Transmission Date: 20100115
  Serious: Yes (Hospitalization)
  Sender: FDA-Public Use
  Company Number: 2009AL001475

PATIENT
  Age: 81 Year
  Sex: Female

DRUGS (19)
  1. DIGOXIN [Suspect]
     Dosage: 0.25MG, DAILY, PO
     Route: 048
  2. GLIPIZIDE [Concomitant]
  3. SYNTHROID [Concomitant]
  4. TOPROL-XL [Concomitant]
  5. AMBIEN [Concomitant]
  6. VALIUM [Concomitant]
  7. CENTRUM [Concomitant]
  8. PAXIL [Concomitant]
  9. METFORMIN [Concomitant]
  10. COLACE [Concomitant]
  11. ........................... [Concomitant]
  12. GLUCOPHAGE [Concomitant]
  13. NITROGLYCERIN [Concomitant]
  14. ASPIRIN [Concomitant]
  15. PLAVIX [Concomitant]
  16. NASONEX [Concomitant]
  17. DULCOLAX [Concomitant]
  18. MULTI-VITAMINS [Concomitant]
  19. LORTAB [Concomitant]

REACTIONS (12)
  - ANXIETY [None]
  - ASTHENIA [None]
  - CHEST PAIN [None]
  - DIZZINESS [None]
  - DYSPNOEA [None]
  - ECONOMIC PROBLEM [None]
  - FEAR [None]
  - FEELING ABNORMAL [None]
  - HYPERHIDROSIS [None]
  - ILL-DEFINED DISORDER [None]
  - MULTIPLE INJURIES [None]
  - NAUSEA [None]
